FAERS Safety Report 25888572 (Version 1)
Quarter: 2025Q4

REPORT INFORMATION
  Report Type: Spontaneous
  Country: US (occurrence: US)
  Receive Date: 20251007
  Receipt Date: 20251007
  Transmission Date: 20260118
  Serious: No
  Sender: BAUSCH AND LOMB
  Company Number: US-BAUSCHBL-2025BNL029550

PATIENT
  Sex: Male

DRUGS (5)
  1. KETOTIFEN [Suspect]
     Active Substance: KETOTIFEN
     Indication: Mast cell activation syndrome
  2. FEXOFENADINE [Suspect]
     Active Substance: FEXOFENADINE HYDROCHLORIDE
     Indication: Mast cell activation syndrome
  3. FAMOTIDINE [Suspect]
     Active Substance: FAMOTIDINE
     Indication: Mast cell activation syndrome
     Dosage: (CBD +/- THC)
  4. CROMOLYN [Suspect]
     Active Substance: CROMOLYN
     Indication: Mast cell activation syndrome
  5. NALTREXONE [Concomitant]
     Active Substance: NALTREXONE
     Indication: Mast cell activation syndrome
     Dosage: LOW-DOSE

REACTIONS (1)
  - Therapy partial responder [Unknown]
